FAERS Safety Report 7580088-X (Version None)
Quarter: 2011Q2

REPORT INFORMATION
  Report Type: 
  Country: None (occurrence: None)
  Receive Date: 20110527
  Receipt Date: 20101108
  Transmission Date: 20111010
  Serious: Yes (Other)
  Sender: FDA-Public Use
  Company Number: US201001002647

PATIENT
  Age: 61 Year
  Sex: Male
  Weight: 113.4 kg

DRUGS (20)
  1. ATENOLOL [Concomitant]
  2. ETODOLAC [Concomitant]
  3. COZAAR [Concomitant]
  4. ZETIA [Concomitant]
  5. ASTELIN [Concomitant]
  6. BYETTA [Suspect]
     Dosage: 5 UG, EACH  MORNING, SUBCUTANEOUS ; 10 UG, EACH EVENING, SUBCUTANEOUS
     Route: 058
     Dates: start: 20060523, end: 20080919
  7. BYETTA [Suspect]
     Dosage: 5 UG, EACH  MORNING, SUBCUTANEOUS ; 10 UG, EACH EVENING, SUBCUTANEOUS
     Route: 058
     Dates: start: 20060523, end: 20080919
  8. BYETTA [Suspect]
     Dosage: 5 UG, EACH  MORNING, SUBCUTANEOUS ; 10 UG, EACH EVENING, SUBCUTANEOUS
     Route: 058
     Dates: start: 20060523, end: 20080601
  9. EXENATIDE 5MCG PEN, DISPOSABLE DEVICE (EXENATIDE PEN (5MCG)) PEN DISPO [Concomitant]
  10. METFORMIN HCL [Concomitant]
  11. RITALIN [Concomitant]
  12. EXENATIDE 10MCG PEN, DISPOSABLE DEVICE (EXENATIDE PEN (10MCG)) PEN,DIS [Concomitant]
  13. HUMALOG [Concomitant]
  14. LANTUS [Concomitant]
  15. STRATTERA [Concomitant]
  16. CIALIS [Concomitant]
  17. GABAPENTIN [Concomitant]
  18. VARDENAFIL (VARDENAFIL) [Concomitant]
  19. WELCHOL [Concomitant]
  20. SAW PALMETTO (SERENOA REPENS) [Concomitant]

REACTIONS (2)
  - PANCREATITIS ACUTE [None]
  - OFF LABEL USE [None]
